FAERS Safety Report 5232085-7 (Version None)
Quarter: 2007Q1

REPORT INFORMATION
  Report Type: 
  Country: None (occurrence: None)
  Receive Date: 20070205
  Receipt Date: 20070123
  Transmission Date: 20070707
  Serious: Yes (Hospitalization)
  Sender: FDA-Public Use
  Company Number: 2006-03205

PATIENT
  Age: 72 Year
  Sex: Female
  Weight: 59.1 kg

DRUGS (2)
  1. VELCADE [Suspect]
     Indication: BREAST CANCER
     Dosage: 1.30 MG/M2, UNK; INTRAVENOUS
     Route: 042
     Dates: start: 20061212
  2. TOPOTECAN (TOPOTECAN) N/A [Suspect]
     Indication: BREAST CANCER
     Dosage: 3.00 MG/M2, UNK; INTRAVENOUS
     Route: 042
     Dates: start: 20061212

REACTIONS (7)
  - ACUTE CORONARY SYNDROME [None]
  - FACIAL PALSY [None]
  - FALL [None]
  - PNEUMONIA [None]
  - TRANSIENT ISCHAEMIC ATTACK [None]
  - URINARY TRACT INFECTION [None]
  - UROSEPSIS [None]
